FAERS Safety Report 4365882-0 (Version None)
Quarter: 2004Q2

REPORT INFORMATION
  Report Type: 
  Country: None (occurrence: None)
  Receive Date: 20040524
  Receipt Date: 20040401
  Transmission Date: 20050107
  Serious: No
  Sender: FDA-Public Use
  Company Number: SU-2004-002265

PATIENT
  Age: 54 Year
  Sex: Female
  Weight: 79.3795 kg

DRUGS (8)
  1. BENICAR [Suspect]
     Indication: HYPERTENSION
     Dosage: 20 MG QD PO
     Route: 048
     Dates: start: 20030203
  2. LOZOL [Concomitant]
  3. XANAX [Concomitant]
  4. PRILOSEC [Concomitant]
  5. K [Concomitant]
  6. CA [Concomitant]
  7. MG [Concomitant]
  8. MULTI-VITAMINS [Concomitant]

REACTIONS (1)
  - CYSTITIS [None]
